FAERS Safety Report 17398907 (Version 1)
Quarter: 2020Q1

REPORT INFORMATION
  Report Type: Spontaneous
  Country: None (occurrence: NL)
  Receive Date: 20200210
  Receipt Date: 20200210
  Transmission Date: 20200409
  Serious: Yes (Death)
  Sender: FDA-Public Use
  Company Number: NL-AKRON, INC.-2080071

PATIENT
  Age: 12 Day

DRUGS (1)
  1. GENTAMICIN SULFATE. [Suspect]
     Active Substance: GENTAMICIN SULFATE

REACTIONS (3)
  - Death [None]
  - Acute hepatitis B [None]
  - Hepatic failure [None]
